FAERS Safety Report 9222811 (Version 1)
Quarter: 2013Q1

REPORT INFORMATION
  Report Type: Spontaneous
  Country: US (occurrence: None)
  Receive Date: 20120914
  Receipt Date: 20120914
  Transmission Date: 20140127
  Serious: Yes (Other)
  Sender: FDA-Public Use
  Company Number: JPI-P-020781

PATIENT
  Age: 61 Year
  Sex: Female

DRUGS (3)
  1. XYREM (500 MILLIGRAM/MILLILITERS, SOLUTION) (SODIUM OXYBATE) [Suspect]
     Indication: FIBROMYALGIA
     Route: 048
     Dates: start: 20051013
  2. PAROXETINE HYDROCHLORIDE [Suspect]
     Dosage: STOPPED
  3. FLUOXETINE HYDROCHLORIDE [Suspect]

REACTIONS (4)
  - Suicidal ideation [None]
  - Toxicity to various agents [None]
  - Skin odour abnormal [None]
  - Multiple allergies [None]
